FAERS Safety Report 16783356 (Version 1)
Quarter: 2019Q3

REPORT INFORMATION
  Report Type: Spontaneous
  Country: FR (occurrence: FR)
  Receive Date: 20190907
  Receipt Date: 20190907
  Transmission Date: 20191005
  Serious: Yes (Hospitalization)
  Sender: FDA-Public Use
  Company Number: FR-ACCORD-154006

PATIENT
  Age: 65 Year
  Sex: Female
  Weight: 80 kg

DRUGS (9)
  1. DOLIPRANE [Concomitant]
     Active Substance: ACETAMINOPHEN
  2. OXYNORMORO [Suspect]
     Active Substance: OXYCODONE HYDROCHLORIDE
     Indication: PAIN
     Dosage: STRENGTH: 10 MG
     Route: 048
     Dates: end: 20181114
  3. CANDESARTAN. [Suspect]
     Active Substance: CANDESARTAN
     Indication: HYPERTENSION
     Dosage: -
     Route: 048
     Dates: end: 20181114
  4. FUROSEMIDE. [Concomitant]
     Active Substance: FUROSEMIDE
  5. LEXOMIL [Suspect]
     Active Substance: BROMAZEPAM
     Indication: PRODUCT USED FOR UNKNOWN INDICATION
     Dosage: ROCHE COMPRIME BAGUETTE, QUADRISECABLE TABLET
  6. KARDEGIC [Concomitant]
     Active Substance: ASPIRIN DL-LYSINE
     Dosage: STRENGTH: 160 MG, POWDER FOR ORAL SOLUTION IN SACHET
  7. HYDROCHLOROTHIAZIDE. [Suspect]
     Active Substance: HYDROCHLOROTHIAZIDE
     Indication: HYPERTENSION
     Route: 048
     Dates: end: 20181114
  8. FORLAX [Concomitant]
     Active Substance: POLYETHYLENE GLYCOL 4000
  9. VENLAFAXINE/VENLAFAXINE HYDROCHLORIDE [Concomitant]

REACTIONS (1)
  - Angioedema [Recovering/Resolving]

NARRATIVE: CASE EVENT DATE: 201808
